FAERS Safety Report 9148262 (Version 2)
Quarter: 2013Q1

REPORT INFORMATION
  Report Type: Spontaneous
  Country: IT (occurrence: IT)
  Receive Date: 20130308
  Receipt Date: 20130327
  Transmission Date: 20140127
  Serious: Yes (Hospitalization, Other)
  Sender: FDA-Public Use
  Company Number: IT-009507513-1303ITA002182

PATIENT
  Age: 51 Year
  Sex: Female

DRUGS (7)
  1. REMERON [Suspect]
     Indication: DEPRESSION
     Dosage: 900 MG, ONCE
     Route: 048
     Dates: start: 20130123, end: 20130123
  2. NOZINAN [Suspect]
     Indication: DEPRESSION
     Dosage: 2 G, ONCE
     Route: 048
     Dates: start: 20130123, end: 20130123
  3. SEROQUEL [Suspect]
     Indication: DEPRESSION
     Dosage: 12 G, ONCE
     Route: 048
     Dates: start: 20130123, end: 20130123
  4. FELISON [Suspect]
     Indication: DEPRESSION
     Dosage: 900 MG, ONCE
     Route: 048
     Dates: start: 20130123, end: 20130123
  5. ALLOPURINOL [Concomitant]
  6. LAMICTAL [Concomitant]
  7. FERRO-GRAD [Concomitant]

REACTIONS (3)
  - Loss of consciousness [Recovering/Resolving]
  - Drug abuse [Recovering/Resolving]
  - Suicide attempt [Unknown]
